FAERS Safety Report 11866000 (Version 1)
Quarter: 2015Q4

REPORT INFORMATION
  Report Type: Report from Study
  Country: TR (occurrence: TR)
  Receive Date: 20151223
  Receipt Date: 20151223
  Transmission Date: 20160305
  Serious: Yes (Other)
  Sender: FDA-Public Use
  Company Number: PHHY2015TR164045

PATIENT
  Age: 12 Year
  Sex: Female
  Weight: 50.9 kg

DRUGS (1)
  1. SOMATROPIN [Suspect]
     Active Substance: SOMATROPIN
     Indication: PRODUCT USED FOR UNKNOWN INDICATION
     Dosage: 1.6 MG, QD
     Route: 058
     Dates: start: 20150427, end: 20151210

REACTIONS (3)
  - Groin pain [Not Recovered/Not Resolved]
  - Hip deformity [Unknown]
  - Limb deformity [Not Recovered/Not Resolved]

NARRATIVE: CASE EVENT DATE: 20151206
